FAERS Safety Report 9583853 (Version 2)
Quarter: 2013Q4

REPORT INFORMATION
  Report Type: Spontaneous
  Country: US (occurrence: US)
  Receive Date: 20131002
  Receipt Date: 20131002
  Transmission Date: 20140711
  Serious: No
  Sender: FDA-Public Use
  Company Number: US-AMGEN-USASP2013039465

PATIENT
  Age: 57 Year
  Sex: Female
  Weight: 73.47 kg

DRUGS (7)
  1. ENBREL [Suspect]
     Indication: PRODUCT USED FOR UNKNOWN INDICATION
     Dosage: 50 MG, QWK
     Route: 058
  2. DEXAMETHASON                       /00016001/ [Concomitant]
     Dosage: 2 MG, UNK
  3. METHOTREXATE [Concomitant]
     Dosage: 2.5 MG, UNK
  4. FOLIC ACID [Concomitant]
     Dosage: UNK
  5. VITAMIN D                          /00107901/ [Concomitant]
     Dosage: 2000 UNIT, UNK
  6. CYMBALTA [Concomitant]
     Dosage: 60 MG, UNK
  7. PRILOSEC                           /00661201/ [Concomitant]
     Dosage: 40 MG, UNK

REACTIONS (11)
  - Dysgeusia [Unknown]
  - Trichorrhexis [Unknown]
  - Contusion [Unknown]
  - Swelling face [Unknown]
  - Skin exfoliation [Unknown]
  - Asthenia [Unknown]
  - Tremor [Unknown]
  - Hyperhidrosis [Unknown]
  - Fatigue [Unknown]
  - Dysphagia [Unknown]
  - Oropharyngeal pain [Unknown]
